FAERS Safety Report 12330413 (Version 2)
Quarter: 2016Q2

REPORT INFORMATION
  Report Type: Report from Study
  Country: US (occurrence: US)
  Receive Date: 20160504
  Receipt Date: 20160511
  Transmission Date: 20160815
  Serious: Yes (Other)
  Sender: FDA-Public Use
  Company Number: US-AMGEN-USASL2016042195

PATIENT
  Age: 73 Year
  Sex: Female

DRUGS (3)
  1. REPATHA [Suspect]
     Active Substance: EVOLOCUMAB
     Indication: PRODUCT USED FOR UNKNOWN INDICATION
     Dosage: 140 MG, Q2WK
     Route: 065
     Dates: start: 201512
  2. XARELTO [Suspect]
     Active Substance: RIVAROXABAN
     Indication: PRODUCT USED FOR UNKNOWN INDICATION
     Dosage: UNK
     Route: 065
  3. INSULIN [Concomitant]
     Active Substance: INSULIN NOS
     Dosage: UNK

REACTIONS (17)
  - Pain in extremity [Unknown]
  - Fear of injection [Unknown]
  - Cough [Unknown]
  - Eye haemorrhage [Not Recovered/Not Resolved]
  - Bone pain [Unknown]
  - Cardiac failure congestive [Unknown]
  - Atelectasis [Unknown]
  - Wrong technique in product usage process [Unknown]
  - Burning sensation [Unknown]
  - Muscular weakness [Unknown]
  - Injection site extravasation [Unknown]
  - Pleural effusion [Unknown]
  - Renal failure [Unknown]
  - Injection site pain [Unknown]
  - Cardiac disorder [Unknown]
  - Myalgia [Unknown]
  - Arthralgia [Unknown]
